FAERS Safety Report 10809168 (Version 1)
Quarter: 2015Q1

REPORT INFORMATION
  Report Type: Report from Study
  Country: US (occurrence: US)
  Receive Date: 20150217
  Receipt Date: 20150217
  Transmission Date: 20150721
  Serious: No
  Sender: FDA-Public Use
  Company Number: US-ABBVIE-14K-163-1210477-00

PATIENT
  Age: 24 Year
  Sex: Female

DRUGS (10)
  1. ARTHROTEC [Concomitant]
     Active Substance: DICLOFENAC SODIUM\MISOPROSTOL
     Indication: RHEUMATOID ARTHRITIS
  2. OMEPRAZOLE. [Concomitant]
     Active Substance: OMEPRAZOLE
     Indication: PROPHYLAXIS
  3. HUMIRA [Suspect]
     Active Substance: ADALIMUMAB
     Indication: RHEUMATOID ARTHRITIS
     Dates: start: 201310
  4. METHOTREXATE [Concomitant]
     Active Substance: METHOTREXATE
     Indication: PRODUCT USED FOR UNKNOWN INDICATION
     Route: 058
  5. KETOCONAZOLE. [Suspect]
     Active Substance: KETOCONAZOLE
     Indication: TINEA INFECTION
     Route: 061
  6. AMBIEN [Concomitant]
     Active Substance: ZOLPIDEM TARTRATE
     Indication: INSOMNIA
  7. LEUKOVORIN [Concomitant]
     Active Substance: LEUCOVORIN SODIUM
     Indication: PRODUCT USED FOR UNKNOWN INDICATION
     Dosage: POST METHOTREXATE
  8. UNKNOWN ORAL MEDICATION [Suspect]
     Active Substance: UNSPECIFIED INGREDIENT
     Indication: TINEA INFECTION
     Route: 048
  9. PLAQUENIL [Concomitant]
     Active Substance: HYDROXYCHLOROQUINE SULFATE
     Indication: RHEUMATOID ARTHRITIS
  10. LEUKOVORIN [Concomitant]
     Active Substance: LEUCOVORIN SODIUM
     Dosage: POST METHOTREXATE

REACTIONS (2)
  - Drug ineffective [Not Recovered/Not Resolved]
  - Tinea infection [Not Recovered/Not Resolved]

NARRATIVE: CASE EVENT DATE: 201310
